FAERS Safety Report 19658654 (Version 2)
Quarter: 2021Q3

REPORT INFORMATION
  Report Type: Spontaneous
  Country: US (occurrence: US)
  Receive Date: 20210804
  Receipt Date: 20210810
  Transmission Date: 20211014
  Serious: No
  Sender: FDA-Public Use
  Company Number: US-PFIZER INC-2021444124

PATIENT
  Age: 65 Year
  Sex: Female
  Weight: 59.87 kg

DRUGS (1)
  1. LYRICA CR [Suspect]
     Active Substance: PREGABALIN
     Indication: COMPLEX REGIONAL PAIN SYNDROME
     Dosage: 82.5 MG, 3X/DAY
     Route: 048
     Dates: start: 202101

REACTIONS (4)
  - Product use complaint [Unknown]
  - Fatigue [Unknown]
  - Off label use [Unknown]
  - Insomnia [Unknown]

NARRATIVE: CASE EVENT DATE: 202101
